FAERS Safety Report 23767646 (Version 1)
Quarter: 2024Q2

REPORT INFORMATION
  Report Type: Spontaneous
  Country: JP (occurrence: None)
  Receive Date: 20240422
  Receipt Date: 20240422
  Transmission Date: 20240716
  Serious: Yes (Death)
  Sender: FDA-Public Use
  Company Number: 2024A094233

PATIENT
  Sex: Male

DRUGS (2)
  1. IMJUDO [Suspect]
     Active Substance: TREMELIMUMAB\TREMELIMUMAB-ACTL
     Indication: Non-small cell lung cancer
     Route: 041
     Dates: start: 202403, end: 2024
  2. IMFINZI [Suspect]
     Active Substance: DURVALUMAB
     Indication: Non-small cell lung cancer
     Route: 042
     Dates: start: 202403, end: 2024

REACTIONS (2)
  - Interstitial lung disease [Fatal]
  - Colitis [Unknown]

NARRATIVE: CASE EVENT DATE: 20240301
